FAERS Safety Report 5822753-8 (Version None)
Quarter: 2008Q3

REPORT INFORMATION
  Report Type: 
  Country: None (occurrence: None)
  Receive Date: 20080725
  Receipt Date: 20070911
  Transmission Date: 20090109
  Serious: No
  Sender: FDA-Public Use
  Company Number: US-AMGEN-KDL232046

PATIENT
  Sex: Male
  Weight: 99.4 kg

DRUGS (9)
  1. PROCRIT [Suspect]
     Indication: PRE-EXISTING DISEASE
     Dates: start: 20070301
  2. DILTIAZEM HCL [Concomitant]
  3. REBETOL [Concomitant]
     Dates: start: 20061001
  4. WARFARIN SODIUM [Concomitant]
     Dates: start: 20060101
  5. TERAZOSIN HCL [Concomitant]
  6. LISINOPRIL [Concomitant]
  7. ATENOLOL [Concomitant]
  8. PEG-INTRON [Concomitant]
  9. ASPIRIN [Concomitant]

REACTIONS (6)
  - INJECTION SITE ERYTHEMA [None]
  - INJECTION SITE HAEMATOMA [None]
  - INJECTION SITE INDURATION [None]
  - INJECTION SITE PRURITUS [None]
  - INJECTION SITE SWELLING [None]
  - PRURITUS [None]
